FAERS Safety Report 5756847-2 (Version None)
Quarter: 2008Q2

REPORT INFORMATION
  Report Type: 
  Country: None (occurrence: None)
  Receive Date: 20080603
  Receipt Date: 20080521
  Transmission Date: 20081010
  Serious: Yes (Other)
  Sender: FDA-Public Use
  Company Number: US-AMGEN-KDL270406

PATIENT
  Sex: Male
  Weight: 49.8 kg

DRUGS (17)
  1. ARANESP [Suspect]
     Indication: DIALYSIS
     Route: 042
     Dates: start: 20070418, end: 20080321
  2. EPOGEN [Suspect]
     Indication: DIALYSIS
     Dates: end: 20070101
  3. SENSIPAR [Concomitant]
     Indication: HYPERPARATHYROIDISM SECONDARY
  4. CLONIDINE [Concomitant]
  5. PROTONIX [Concomitant]
  6. LISINOPRIL [Concomitant]
  7. VITAMIN B COMPLEX WITH C [Concomitant]
  8. TOPRAL [Concomitant]
  9. COUMADIN [Concomitant]
  10. NORVASC [Concomitant]
  11. VALIUM [Concomitant]
  12. AMBIEN [Concomitant]
  13. HYDROCODONE BITARTRATE + ACETAMINOPHEN [Concomitant]
  14. RENAGEL [Concomitant]
  15. ZEMPLAR [Concomitant]
     Route: 042
  16. METOPROLOL TARTRATE [Concomitant]
  17. ATAZANAVIR SULFATE [Concomitant]

REACTIONS (3)
  - ANAEMIA [None]
  - ANTI-ERYTHROPOIETIN ANTIBODY POSITIVE [None]
  - IRON DEFICIENCY [None]
